FAERS Safety Report 6931901-8 (Version None)
Quarter: 2010Q3

REPORT INFORMATION
  Report Type: 
  Country: None (occurrence: None)
  Receive Date: 20100819
  Receipt Date: 20100811
  Transmission Date: 20110219
  Serious: Yes (Other)
  Sender: FDA-Public Use
  Company Number: US-PFIZER INC-2010101747

PATIENT
  Sex: Female
  Weight: 75 kg

DRUGS (1)
  1. DEPO-PROVERA [Suspect]
     Indication: CONTRACEPTION
     Dosage: UNK
     Dates: start: 20100218, end: 20100101

REACTIONS (5)
  - MALAISE [None]
  - MENSTRUATION DELAYED [None]
  - OVARIAN CYST [None]
  - PAIN [None]
  - VOMITING [None]
